FAERS Safety Report 21173875 (Version 1)
Quarter: 2022Q3

REPORT INFORMATION
  Report Type: Spontaneous
  Country: US (occurrence: US)
  Receive Date: 20220804
  Receipt Date: 20220804
  Transmission Date: 20221027
  Serious: No
  Sender: FDA-Public Use
  Company Number: US-PERRIGO-22US008180

PATIENT
  Sex: Male

DRUGS (2)
  1. LORATADINE [Suspect]
     Active Substance: LORATADINE
     Indication: Product used for unknown indication
     Dosage: UNK, UNK
     Route: 048
     Dates: start: 20220606, end: 20220606
  2. LORATADINE [Suspect]
     Active Substance: LORATADINE
     Dosage: UNK, UNK
     Route: 045
     Dates: start: 20220606, end: 20220606

REACTIONS (5)
  - Altered state of consciousness [Unknown]
  - Headache [Unknown]
  - Intentional overdose [Unknown]
  - Incorrect route of product administration [Unknown]
  - Wrong technique in product usage process [Unknown]

NARRATIVE: CASE EVENT DATE: 20220606
